FAERS Safety Report 24315717 (Version 1)
Quarter: 2024Q3

REPORT INFORMATION
  Report Type: Spontaneous
  Country: US (occurrence: None)
  Receive Date: 20240912
  Receipt Date: 20240912
  Transmission Date: 20241016
  Serious: Yes (Disabling)
  Sender: Public
  Company Number: None

PATIENT
  Age: 66 Year
  Sex: Female
  Weight: 65.7 kg

DRUGS (3)
  1. REPATHA [Suspect]
     Active Substance: EVOLOCUMAB
     Indication: Low density lipoprotein increased
     Dates: start: 20240706, end: 20240831
  2. ASPIRIN [Concomitant]
     Active Substance: ASPIRIN
  3. B12 [Concomitant]

REACTIONS (5)
  - Fatigue [None]
  - Headache [None]
  - Disturbance in attention [None]
  - Amnesia [None]
  - Loss of personal independence in daily activities [None]

NARRATIVE: CASE EVENT DATE: 20240831
